FAERS Safety Report 16557912 (Version 1)
Quarter: 2019Q3

REPORT INFORMATION
  Report Type: Spontaneous
  Country: BR (occurrence: BR)
  Receive Date: 20190711
  Receipt Date: 20190711
  Transmission Date: 20191004
  Serious: Yes (Other)
  Sender: FDA-Public Use
  Company Number: BR-ROCHE-2349072

PATIENT
  Age: 65 Year
  Sex: Female

DRUGS (19)
  1. PRAMIPEXOL [PRAMIPEXOLE] [Suspect]
     Active Substance: PRAMIPEXOLE
     Dosage: 4 TIMES A DAY
     Route: 065
  2. PRAMIPEXOL [PRAMIPEXOLE] [Suspect]
     Active Substance: PRAMIPEXOLE
     Dosage: 4 TIMES A DAY
     Route: 065
  3. PRAMIPEXOL [PRAMIPEXOLE] [Suspect]
     Active Substance: PRAMIPEXOLE
     Dosage: HALF A TABLET, FOUR TIMES A DAY
     Route: 065
  4. PROLOPA [Suspect]
     Active Substance: BENSERAZIDE\LEVODOPA
     Dosage: BD?100/25 MG - 2 TABLETS, 5 TIMES A DAY
     Route: 065
  5. CLONAZEPAM. [Suspect]
     Active Substance: CLONAZEPAM
     Indication: PRODUCT USED FOR UNKNOWN INDICATION
     Dosage: AT NIGHT
     Route: 065
  6. CLONAZEPAM. [Suspect]
     Active Substance: CLONAZEPAM
     Dosage: AT NIGHT
     Route: 065
  7. BIPERIDEN [Suspect]
     Active Substance: BIPERIDEN
     Indication: PARKINSON^S DISEASE
     Route: 065
  8. PROLOPA [Suspect]
     Active Substance: BENSERAZIDE\LEVODOPA
     Dosage: DR?200/50 MG - ONE TABLET AND A HALF, 5 TIMES A DAY
     Route: 065
  9. PRAMIPEXOL [PRAMIPEXOLE] [Suspect]
     Active Substance: PRAMIPEXOLE
     Indication: PARKINSON^S DISEASE
     Dosage: 3 TIMES A DAY
     Route: 065
  10. PROLOPA [Suspect]
     Active Substance: BENSERAZIDE\LEVODOPA
     Indication: PARKINSON^S DISEASE
     Dosage: 200/50 MG - 6 TIMES A DAY
     Route: 065
  11. AMANTADINE. [Suspect]
     Active Substance: AMANTADINE HYDROCHLORIDE
     Indication: PARKINSON^S DISEASE
     Dosage: 3 TIMES A DAY
     Route: 065
  12. PRAMIPEXOL [PRAMIPEXOLE] [Suspect]
     Active Substance: PRAMIPEXOLE
     Dosage: 1 MG AND 0.5 MG, TWICE A DAY AND 1 MG, TWICE A DAY
     Route: 065
  13. ENTACAPONE. [Suspect]
     Active Substance: ENTACAPONE
     Indication: PARKINSON^S DISEASE
     Route: 065
  14. PROLOPA [Suspect]
     Active Substance: BENSERAZIDE\LEVODOPA
     Dosage: 200/50 MG - 4 TIMES A DAY
     Route: 065
  15. PROLOPA [Suspect]
     Active Substance: BENSERAZIDE\LEVODOPA
     Dosage: DISPERSIBLE TABLETS?100/25 MG, 4 TIMES A DAY
     Route: 065
  16. PROLOPA [Suspect]
     Active Substance: BENSERAZIDE\LEVODOPA
     Dosage: HBS (HYDRODYNAMICALLY BALANCED SYSTEM)?100/25 MG - ONCE A DAY
     Route: 065
  17. PROLOPA [Suspect]
     Active Substance: BENSERAZIDE\LEVODOPA
     Dosage: BD?100/25 MG - 2 TABLETS, TWICE A DAY, AND 3 TABLETS, 3 TIMES A DAY
     Route: 065
  18. PROLOPA [Suspect]
     Active Substance: BENSERAZIDE\LEVODOPA
     Dosage: DR?200/50 MG - 2 TABLETS, 5 TIMES A DAY
     Route: 065
  19. CLOZAPINE. [Suspect]
     Active Substance: CLOZAPINE
     Indication: PRODUCT USED FOR UNKNOWN INDICATION
     Dosage: HALF A TABLET, EVERY 12 HOURS
     Route: 065

REACTIONS (11)
  - Inappropriate schedule of product administration [Unknown]
  - Dyskinesia [Unknown]
  - Psychotic disorder [Recovered/Resolved]
  - Therapeutic response shortened [Unknown]
  - Balance disorder [Unknown]
  - Musculoskeletal stiffness [Unknown]
  - Hallucination [Recovered/Resolved]
  - Dystonia [Unknown]
  - Dysphagia [Unknown]
  - Tremor [Unknown]
  - On and off phenomenon [Unknown]
